FAERS Safety Report 5290442-7 (Version None)
Quarter: 2007Q2

REPORT INFORMATION
  Report Type: 
  Country: None (occurrence: None)
  Receive Date: 20070409
  Receipt Date: 20070328
  Transmission Date: 20071010
  Serious: Yes (Hospitalization)
  Sender: FDA-Public Use
  Company Number: PHHO2007US05612

PATIENT
  Age: 64 Year
  Sex: Male
  Weight: 78.47 kg

DRUGS (2)
  1. RAD [Suspect]
     Indication: HEART TRANSPLANT
     Dosage: 1 MG, Q12H
     Route: 048
     Dates: start: 20070228, end: 20070327
  2. NEORAL [Suspect]
     Indication: HEART TRANSPLANT
     Dosage: 150 MG, Q12H
     Route: 048
     Dates: start: 20070228

REACTIONS (7)
  - CHEST DISCOMFORT [None]
  - DIASTOLIC DYSFUNCTION [None]
  - EJECTION FRACTION DECREASED [None]
  - FALL [None]
  - HEART TRANSPLANT REJECTION [None]
  - PERICARDIAL DRAINAGE [None]
  - PERICARDIAL EFFUSION [None]
